FAERS Safety Report 4720688-5 (Version None)
Quarter: 2005Q3

REPORT INFORMATION
  Report Type: 
  Country: None (occurrence: None)
  Receive Date: 20050719
  Receipt Date: 20050628
  Transmission Date: 20060218
  Serious: Yes (Hospitalization)
  Sender: FDA-Public Use
  Company Number: 2005RL000078

PATIENT
  Age: 63 Year
  Sex: Male
  Weight: 88.4514 kg

DRUGS (7)
  1. RYTHMOL SR [Suspect]
     Indication: ATRIAL FIBRILLATION
     Dosage: 325 + 225 MG X! + Q12H; PO
     Route: 048
     Dates: end: 20050626
  2. RYTHMOL SR [Suspect]
     Indication: ATRIAL FIBRILLATION
     Dosage: 325 + 225 MG X! + Q12H; PO
     Route: 048
     Dates: start: 20050627
  3. PRAVACHOL [Concomitant]
  4. FLOMAX ^CSL^ [Concomitant]
  5. SELENIUM SULFIDE [Concomitant]
  6. WARFARIN SODIUM [Concomitant]
  7. CARDIZEM [Concomitant]

REACTIONS (3)
  - ATRIAL FIBRILLATION [None]
  - CONDITION AGGRAVATED [None]
  - DRUG EFFECT DECREASED [None]
